FAERS Safety Report 4314516-X (Version None)
Quarter: 2004Q1

REPORT INFORMATION
  Report Type: 
  Country: None (occurrence: None)
  Receive Date: 20040309
  Receipt Date: 20040224
  Transmission Date: 20041129
  Serious: No
  Sender: FDA-Public Use
  Company Number: CIO04001998

PATIENT
  Sex: Female

DRUGS (1)
  1. CREST W/ FLUORIDE [Suspect]
     Dosage: 1 APPLIC, 2/DAY FOR 3 DAYS, INTRAORAL
     Dates: start: 20040123, end: 20040125

REACTIONS (8)
  - CHEST PAIN [None]
  - DEATH OF SPOUSE [None]
  - DYSPNOEA [None]
  - ORAL PAIN [None]
  - PAIN IN JAW [None]
  - PHARYNGOLARYNGEAL PAIN [None]
  - STRESS SYMPTOMS [None]
  - TOOTHACHE [None]
